FAERS Safety Report 10267345 (Version 3)
Quarter: 2014Q3

REPORT INFORMATION
  Report Type: Spontaneous
  Country: AR (occurrence: AR)
  Receive Date: 20140630
  Receipt Date: 20140718
  Transmission Date: 20150326
  Serious: Yes (Other)
  Sender: FDA-Public Use
  Company Number: PHHY2014AR003505

PATIENT
  Age: 68 Year
  Sex: Male

DRUGS (3)
  1. EXELON [Suspect]
     Active Substance: RIVASTIGMINE TARTRATE
     Indication: PARALYSIS
  2. EXELON [Suspect]
     Active Substance: RIVASTIGMINE TARTRATE
     Indication: MEMORY IMPAIRMENT
     Dosage: 1.5 MG, BID
     Route: 048
     Dates: start: 201310, end: 20140214
  3. EXELON [Suspect]
     Active Substance: RIVASTIGMINE TARTRATE
     Indication: AMNESIA
     Dosage: 1.5 MG, BID
     Route: 048

REACTIONS (9)
  - Nervousness [Recovering/Resolving]
  - Cerebrovascular accident [Recovering/Resolving]
  - Speech disorder [Recovering/Resolving]
  - Pollakiuria [Not Recovered/Not Resolved]
  - Condition aggravated [Unknown]
  - Anxiety [Recovered/Resolved]
  - Memory impairment [Not Recovered/Not Resolved]
  - Disorientation [Recovering/Resolving]
  - Feeling abnormal [Unknown]

NARRATIVE: CASE EVENT DATE: 20140105
